FAERS Safety Report 20831327 (Version 2)
Quarter: 2022Q2

REPORT INFORMATION
  Report Type: Report from Study
  Country: US (occurrence: None)
  Receive Date: 20220516
  Receipt Date: 20220528
  Transmission Date: 20220721
  Serious: No
  Sender: FDA-Public Use
  Company Number: US-Merck Healthcare KGaA-9318261

PATIENT
  Age: 54 Year
  Sex: Female

DRUGS (2)
  1. MAVENCLAD [Suspect]
     Active Substance: CLADRIBINE
     Indication: Multiple sclerosis
     Dosage: YEAR ONE MONTH ONE THERAPY
     Route: 048
     Dates: start: 20220418, end: 20220422
  2. TOPAMAX [Concomitant]
     Active Substance: TOPIRAMATE
     Indication: Migraine

REACTIONS (3)
  - Fatigue [Unknown]
  - Decreased appetite [Unknown]
  - Headache [Not Recovered/Not Resolved]

NARRATIVE: CASE EVENT DATE: 20220428
